FAERS Safety Report 4866497-8 (Version None)
Quarter: 2005Q4

REPORT INFORMATION
  Report Type: 
  Country: None (occurrence: None)
  Receive Date: 20051227
  Receipt Date: 20050929
  Transmission Date: 20060501
  Serious: Yes (Hospitalization, Disabling)
  Sender: FDA-Public Use
  Company Number: US-MERCK-0510USA00529

PATIENT
  Age: 60 Year
  Sex: Male
  Weight: 98 kg

DRUGS (26)
  1. RIFAMPIN [Concomitant]
     Route: 065
  2. DOXYCYCLINE [Concomitant]
     Route: 065
  3. WELLBUTRIN [Concomitant]
     Route: 065
  4. CARDURA [Concomitant]
     Route: 065
  5. FLOMAX [Concomitant]
     Route: 065
  6. PREVACID [Concomitant]
     Route: 065
  7. CEPHALEXIN [Concomitant]
     Route: 065
  8. PERCOCET [Concomitant]
     Route: 065
  9. PEPCID [Concomitant]
     Route: 048
  10. PREVPAC [Concomitant]
     Route: 065
  11. ANDROGEL [Concomitant]
     Route: 065
  12. DONNATAL [Concomitant]
     Route: 065
  13. TEGRETOL-XR [Concomitant]
     Route: 065
  14. CALCIUM (UNSPECIFIED) [Concomitant]
     Route: 065
  15. VIOXX [Suspect]
     Indication: MONARTHRITIS
     Route: 048
     Dates: start: 19991201, end: 20040101
  16. PHENOBARBITAL [Concomitant]
     Route: 065
  17. COUMADIN [Concomitant]
     Route: 065
  18. COUMADIN [Concomitant]
     Route: 065
  19. MEVACOR [Concomitant]
     Route: 065
  20. CLEMASTINE [Concomitant]
     Route: 065
  21. POTASSIUM (UNSPECIFIED) [Concomitant]
     Route: 065
  22. DILANTIN [Concomitant]
     Route: 065
  23. DILANTIN [Concomitant]
     Route: 065
  24. DURAGESIC-100 [Concomitant]
     Route: 065
  25. COMBIVENT [Concomitant]
     Route: 065
  26. HYDROCODONE BITARTRATE [Concomitant]
     Route: 065

REACTIONS (12)
  - ABDOMINAL PAIN [None]
  - BUNION [None]
  - CONVULSION [None]
  - DIZZINESS [None]
  - FALL [None]
  - MONARTHRITIS [None]
  - MYOCARDIAL INFARCTION [None]
  - PROSTATE EXAMINATION ABNORMAL [None]
  - ROAD TRAFFIC ACCIDENT [None]
  - SYNCOPE [None]
  - TOE DEFORMITY [None]
  - WRIST FRACTURE [None]
